FAERS Safety Report 13071702 (Version 2)
Quarter: 2017Q1

REPORT INFORMATION
  Report Type: Spontaneous
  Country: FR (occurrence: FR)
  Receive Date: 20161229
  Receipt Date: 20170105
  Transmission Date: 20170428
  Serious: Yes (Death, Hospitalization, Disabling)
  Sender: FDA-Public Use
  Company Number: FR-PFIZER INC-2016593017

PATIENT
  Age: 61 Year
  Sex: Male

DRUGS (12)
  1. AMLOR [Concomitant]
     Active Substance: AMLODIPINE BESYLATE
     Dosage: 10 MG, UNK
  2. VALIUM [Concomitant]
     Active Substance: DIAZEPAM
     Dosage: 5 MG, UNK
  3. INEXIUM /01479302/ [Concomitant]
     Active Substance: ESOMEPRAZOLE MAGNESIUM
     Dosage: 40 MG, UNK
  4. OXYCONTIN [Concomitant]
     Active Substance: OXYCODONE HYDROCHLORIDE
     Dosage: UNK
  5. CORTANCYL [Concomitant]
     Active Substance: PREDNISONE
  6. NOVORAPID [Concomitant]
     Active Substance: INSULIN ASPART
  7. KETOPROFEN. [Concomitant]
     Active Substance: KETOPROFEN
     Dosage: UNK
  8. INLYTA [Suspect]
     Active Substance: AXITINIB
     Indication: RENAL CANCER METASTATIC
     Dosage: 10 MG, 2X/DAY
     Route: 048
     Dates: start: 20160903, end: 20161104
  9. LANTUS [Concomitant]
     Active Substance: INSULIN GLARGINE
  10. LEVOTHYROX [Concomitant]
     Active Substance: LEVOTHYROXINE
     Dosage: 175 MG, UNK
  11. LYRICA [Concomitant]
     Active Substance: PREGABALIN
     Dosage: UNK
  12. VERSATIS [Concomitant]
     Active Substance: LIDOCAINE
     Dosage: UNK

REACTIONS (7)
  - Death [Fatal]
  - Gastrointestinal necrosis [Recovering/Resolving]
  - Quadriplegia [Unknown]
  - Somnolence [Unknown]
  - Confusional state [Unknown]
  - Pulmonary embolism [Recovering/Resolving]
  - Pneumoperitoneum [Recovering/Resolving]

NARRATIVE: CASE EVENT DATE: 20161104
